FAERS Safety Report 8540260 (Version 3)
Quarter: 2014Q3

REPORT INFORMATION
  Report Type: Report from Study
  Country: ES (occurrence: ES)
  Receive Date: 20120502
  Receipt Date: 20140910
  Transmission Date: 20150326
  Serious: No
  Sender: FDA-Public Use
  Company Number: ES-US-EMD SERONO, INC.-7128559

PATIENT
  Age: 5 Year
  Sex: Female
  Weight: 12 kg

DRUGS (3)
  1. SAIZEN [Suspect]
     Active Substance: SOMATROPIN
     Indication: SMALL FOR DATES BABY
     Route: 058
     Dates: start: 20100303, end: 20120130
  2. SAIZEN [Suspect]
     Active Substance: SOMATROPIN
     Route: 058
     Dates: start: 20120321, end: 20120508
  3. SAIZEN [Suspect]
     Active Substance: SOMATROPIN
     Route: 058
     Dates: start: 20120131, end: 20120321

REACTIONS (1)
  - Insulin-like growth factor increased [Not Recovered/Not Resolved]

NARRATIVE: CASE EVENT DATE: 20110930
